FAERS Safety Report 17556289 (Version 1)
Quarter: 2020Q1

REPORT INFORMATION
  Report Type: Spontaneous
  Country: US (occurrence: US)
  Receive Date: 20200318
  Receipt Date: 20200318
  Transmission Date: 20200409
  Serious: Yes (Disabling)
  Sender: FDA-Public Use
  Company Number: None

PATIENT
  Age: 22 Year
  Sex: Female
  Weight: 50 kg

DRUGS (1)
  1. CLARAVIS [Suspect]
     Active Substance: ISOTRETINOIN
     Indication: ACNE
     Dates: start: 20130601, end: 20140101

REACTIONS (8)
  - Alopecia [None]
  - Dry eye [None]
  - Brain injury [None]
  - Muscle injury [None]
  - Ligament injury [None]
  - Cognitive disorder [None]
  - Eye injury [None]
  - Intervertebral disc degeneration [None]

NARRATIVE: CASE EVENT DATE: 20140509
